FAERS Safety Report 8702908 (Version 4)
Quarter: 2012Q4

REPORT INFORMATION
  Report Type: 
  Country: BR (occurrence: BR)
  Receive Date: 20120803
  Receipt Date: 20121004
  Transmission Date: 20130627
  Serious: Yes (Death, Hospitalization)
  Sender: FDA-Public Use
  Company Number: BR-ELI_LILLY_AND_COMPANY-BR201202003425

PATIENT
  Sex: Female
  Weight: 57.8 kg

DRUGS (8)
  1. GEMZAR [Suspect]
     Indication: PANCREATIC CARCINOMA
     Dosage: 1470 mg, other
     Route: 042
  2. GEMZAR [Suspect]
     Dosage: 1580 mg, cycle
     Route: 042
  3. GEMZAR [Suspect]
     Dosage: UNK, unknown
     Route: 042
     Dates: end: 20120207
  4. GLIBENCLAMIDE [Concomitant]
     Dosage: UNK, unknown
     Route: 065
  5. METFORMIN [Concomitant]
     Dosage: UNK, unknown
     Route: 065
  6. TRAMADOL [Concomitant]
     Route: 065
  7. METAMIZOLE SODIUM [Concomitant]
     Dosage: UNK, unknown
     Route: 065
  8. ACETYLSALICYLIC ACID [Concomitant]
     Dosage: UNK, unknown
     Route: 065

REACTIONS (10)
  - Death [Fatal]
  - Infection [Unknown]
  - Pyrexia [Unknown]
  - Tremor [Unknown]
  - Asthenia [Unknown]
  - Abdominal pain upper [Unknown]
  - Pyrexia [Unknown]
  - Abdominal pain [Unknown]
  - Vomiting [Unknown]
  - Blood pressure increased [Unknown]
